FAERS Safety Report 13440824 (Version 6)
Quarter: 2017Q3

REPORT INFORMATION
  Report Type: Spontaneous
  Country: US (occurrence: US)
  Receive Date: 20170413
  Receipt Date: 20170703
  Transmission Date: 20171127
  Serious: Yes (Death, Hospitalization, Other)
  Sender: FDA-Public Use
  Company Number: US-ACTELION-A-NJ2017-152515

PATIENT
  Age: 64 Year
  Sex: Male
  Weight: 107.3 kg

DRUGS (22)
  1. ULORIC [Concomitant]
     Active Substance: FEBUXOSTAT
     Dosage: 80 MG, QD
     Route: 048
  2. ACETAMINOPHEN. [Concomitant]
     Active Substance: ACETAMINOPHEN
     Dosage: 600 UNK, UNK
     Route: 048
  3. REMODULIN [Suspect]
     Active Substance: TREPROSTINIL
     Indication: PRODUCT USED FOR UNKNOWN INDICATION
     Dosage: 2.5 MG/ML SOL, TITRATE PER MD ORDERS
     Route: 042
     Dates: end: 20170427
  4. ADCIRCA [Concomitant]
     Active Substance: TADALAFIL
     Dosage: 10 MG, QD
  5. MIRAPEX [Concomitant]
     Active Substance: PRAMIPEXOLE DIHYDROCHLORIDE
     Dosage: 0.150 MG, QPM
     Route: 048
  6. LIPITOR [Concomitant]
     Active Substance: ATORVASTATIN CALCIUM
     Dosage: 20 MG, QPM
     Route: 048
  7. ACETAMINOPHEN. [Concomitant]
     Active Substance: ACETAMINOPHEN
     Dosage: 650 MG, AS DIRECTED
     Route: 048
  8. ADCIRCA [Concomitant]
     Active Substance: TADALAFIL
     Dosage: 20 MG, QD
     Route: 048
  9. COUMADIN [Concomitant]
     Active Substance: WARFARIN SODIUM
     Dosage: 2 MG, UNK
  10. MIRALAX [Concomitant]
     Active Substance: POLYETHYLENE GLYCOL 3350
     Dosage: 1 PACKET ONCE DAILY, PRN
     Route: 048
  11. MIRAPEX [Concomitant]
     Active Substance: PRAMIPEXOLE DIHYDROCHLORIDE
     Dosage: 0.25 MG, QPM
     Dates: start: 20170406
  12. VITAMIN C [Concomitant]
     Active Substance: ASCORBIC ACID
     Dosage: 500 MG, QAM WITH BREAKFAST
     Route: 048
  13. REMODULIN [Suspect]
     Active Substance: TREPROSTINIL
     Dosage: 16 NG/KG, PER MIN
     Route: 042
  14. ATIVAN [Concomitant]
     Active Substance: LORAZEPAM
     Dosage: 5 MG, PRN
     Dates: start: 20170428, end: 20170430
  15. TRACLEER [Suspect]
     Active Substance: BOSENTAN
     Indication: PULMONARY ARTERIAL HYPERTENSION
     Dosage: 125 MG, BID
     Route: 048
     Dates: start: 20120106, end: 20170428
  16. MAGNESIUM OXIDE. [Concomitant]
     Active Substance: MAGNESIUM OXIDE
     Dosage: 400 MG, QD
     Route: 048
  17. VITAMIN E [Concomitant]
     Active Substance: .ALPHA.-TOCOPHEROL
     Dosage: 400 U, QD
     Route: 048
  18. REMODULIN [Suspect]
     Active Substance: TREPROSTINIL
     Dosage: 18 NG/KG, PER MIN
     Route: 042
  19. TRAMADOL. [Concomitant]
     Active Substance: TRAMADOL
     Indication: PAIN
     Dosage: 50 MG, Q6HR, PRN
     Route: 048
  20. PRILOSEC [Concomitant]
     Active Substance: OMEPRAZOLE MAGNESIUM
     Dosage: 20 MG, BID
     Route: 048
  21. ROXANOL [Concomitant]
     Active Substance: MORPHINE SULFATE
     Dosage: 0.25-0.5 ML, PRN
     Dates: start: 20170428, end: 20170430
  22. FERROUS SULFATE. [Concomitant]
     Active Substance: FERROUS SULFATE
     Dosage: 325 MG, BID WITH BREAKFAST AND SUPPER
     Route: 048

REACTIONS (16)
  - Dizziness [Unknown]
  - Ventricular hypokinesia [Unknown]
  - Arthralgia [Unknown]
  - Vision blurred [Unknown]
  - Pulmonary hypertension [Unknown]
  - Gout [Unknown]
  - Death [Fatal]
  - Nausea [Recovering/Resolving]
  - Transfusion [Unknown]
  - Mental status changes [Unknown]
  - Malaise [Unknown]
  - Vomiting [Recovering/Resolving]
  - Dialysis [Unknown]
  - Tinnitus [Unknown]
  - Hypotension [Unknown]
  - Diarrhoea [Unknown]

NARRATIVE: CASE EVENT DATE: 20170420
